FAERS Safety Report 7179501-1 (Version None)
Quarter: 2010Q4

REPORT INFORMATION
  Report Type: 
  Country: None (occurrence: None)
  Receive Date: 20101221
  Receipt Date: 20101216
  Transmission Date: 20110411
  Serious: Yes (Other)
  Sender: FDA-Public Use
  Company Number: US-BAXTER-2010BH028213

PATIENT
  Age: 12 Year
  Sex: Male

DRUGS (2)
  1. ADVATE [Suspect]
     Indication: HAEMOPHILIA
     Route: 065
     Dates: start: 20101101, end: 20100101
  2. ADVATE [Suspect]
     Route: 065

REACTIONS (1)
  - CYANOSIS [None]
